FAERS Safety Report 7571760-6 (Version None)
Quarter: 2011Q2

REPORT INFORMATION
  Report Type: 
  Country: None (occurrence: None)
  Receive Date: 20110624
  Receipt Date: 20110613
  Transmission Date: 20111010
  Serious: Yes (Other)
  Sender: FDA-Public Use
  Company Number: ES-BRISTOL-MYERS SQUIBB COMPANY-15844566

PATIENT
  Age: 41 Year
  Sex: Female

DRUGS (8)
  1. LOPINAVIR [Suspect]
     Indication: HIV INFECTION
     Dates: start: 20071001
  2. INDINIVIR SULFATE [Suspect]
     Indication: HIV INFECTION
     Dosage: OCT96-SEP2000.MAY01-OCT07.
     Route: 048
     Dates: start: 19961001, end: 20071001
  3. EFAVIRENZ [Suspect]
     Indication: HIV INFECTION
     Dates: start: 20000901, end: 20010501
  4. TENOFOVIR DISOPROXIL FUMARATE [Suspect]
     Indication: HIV INFECTION
     Dates: start: 20080401
  5. SULFAMETHOXAZOLE AND TRIMETHOPRIM [Suspect]
     Dates: start: 19961001
  6. NEVIRAPINE [Suspect]
     Indication: HIV INFECTION
     Dates: start: 20080401, end: 20080601
  7. LAMIVUDINE [Suspect]
     Dosage: OCT1996-JAN08.APR08-AUG2008.
     Dates: start: 19961001, end: 20080801
  8. ZIDOVUDINE [Suspect]
     Dates: start: 19961001, end: 20080101

REACTIONS (7)
  - CALCULUS URETERIC [None]
  - HEPATOTOXICITY [None]
  - GASTROINTESTINAL DISORDER [None]
  - OBSTRUCTIVE UROPATHY [None]
  - NERVOUS SYSTEM DISORDER [None]
  - RASH [None]
  - LIPODYSTROPHY ACQUIRED [None]
